FAERS Safety Report 5772257-6 (Version None)
Quarter: 2008Q2

REPORT INFORMATION
  Report Type: 
  Country: None (occurrence: None)
  Receive Date: 20080613
  Receipt Date: 20080603
  Transmission Date: 20081010
  Serious: Yes (Hospitalization, Other)
  Sender: FDA-Public Use
  Company Number: PHHY2008BR10104

PATIENT
  Sex: Male
  Weight: 68.5 kg

DRUGS (10)
  1. FORASEQ [Suspect]
     Indication: EMPHYSEMA
     Dosage: UNK
     Dates: start: 20040101, end: 20071201
  2. FORASEQ [Suspect]
     Dosage: UNK
     Dates: start: 20080604
  3. PREDNISONE TAB [Concomitant]
     Indication: EMPHYSEMA
     Dosage: UNK
     Dates: start: 20030101
  4. TALOFILINA [Concomitant]
     Indication: EMPHYSEMA
     Dosage: 1 TAB/12 HOURS
     Route: 048
     Dates: start: 20050101
  5. CALCIUM CARBONATE [Concomitant]
     Dosage: 1 TAB/12 HRS
     Route: 048
     Dates: start: 20050101
  6. HYDROCHLOROTHIAZIDE [Concomitant]
     Dosage: 1TAB/MORNING
     Route: 048
     Dates: start: 19930101
  7. VERAPAMIL HYDROCHLORIDE [Concomitant]
     Indication: HYPERTENSION
     Dosage: UNK
     Route: 048
     Dates: start: 20040101
  8. OMEPRAZOLE [Concomitant]
     Dosage: UNK
     Route: 048
     Dates: start: 20040101
  9. OXYGEN [Concomitant]
     Dosage: UNK
  10. FORMOTEROL W/BUDESONIDE [Concomitant]

REACTIONS (11)
  - ABDOMINAL DISTENSION [None]
  - CAPILLARY FRAGILITY [None]
  - CATARACT [None]
  - DYSPHONIA [None]
  - EMPHYSEMA [None]
  - EYE DISORDER [None]
  - GLAUCOMA [None]
  - MUSCULAR WEAKNESS [None]
  - NERVOUS SYSTEM DISORDER [None]
  - SURGERY [None]
  - TREMOR [None]
